FAERS Safety Report 15802494 (Version 2)
Quarter: 2019Q1

REPORT INFORMATION
  Report Type: Spontaneous
  Country: DE (occurrence: DE)
  Receive Date: 20190109
  Receipt Date: 20190111
  Transmission Date: 20190417
  Serious: Yes (Other)
  Sender: FDA-Public Use
  Company Number: DE-ALLERGAN-1631836

PATIENT
  Age: 61 Year
  Sex: Male

DRUGS (3)
  1. AZATHIOPRINE. [Suspect]
     Active Substance: AZATHIOPRINE
     Indication: COLITIS MICROSCOPIC
     Dosage: 100 MG, QD
     Route: 065
  2. MESALAZINE UNK [Suspect]
     Active Substance: MESALAMINE
     Indication: COLITIS MICROSCOPIC
     Dosage: UNK
     Route: 065
  3. BUDESONIDE. [Concomitant]
     Active Substance: BUDESONIDE
     Indication: COLITIS MICROSCOPIC
     Route: 061

REACTIONS (3)
  - Tubulointerstitial nephritis [Recovering/Resolving]
  - Product use in unapproved indication [Unknown]
  - Hepatic enzyme increased [Recovered/Resolved]
